FAERS Safety Report 24817876 (Version 1)
Quarter: 2025Q1

REPORT INFORMATION
  Report Type: Spontaneous
  Country: CZ (occurrence: CZ)
  Receive Date: 20250108
  Receipt Date: 20250108
  Transmission Date: 20250409
  Serious: Yes (Hospitalization, Disabling, Other)
  Sender: SUNOVION
  Company Number: None

PATIENT

DRUGS (16)
  1. RELUGOLIX [Suspect]
     Active Substance: RELUGOLIX
     Indication: Prostate cancer
     Dosage: 1-0-0
     Dates: start: 20240614, end: 20240822
  2. RELUGOLIX [Suspect]
     Active Substance: RELUGOLIX
     Dosage: 1-0-0
     Dates: start: 20240906, end: 20241030
  3. LENVATINIB [Suspect]
     Active Substance: LENVATINIB
     Indication: Prostate cancer
     Dates: start: 20240701, end: 20240821
  4. LENVATINIB [Suspect]
     Active Substance: LENVATINIB
     Dates: start: 20241010, end: 20241121
  5. DEGARELIX ACETATE [Suspect]
     Active Substance: DEGARELIX ACETATE
     Indication: Prostate cancer
     Route: 065
     Dates: start: 20241107, end: 20241107
  6. PEMBROLIZUMAB [Suspect]
     Active Substance: PEMBROLIZUMAB
     Indication: Prostate cancer
     Route: 065
     Dates: start: 20240701, end: 20240812
  7. THEOPHYLLINE [Concomitant]
     Active Substance: THEOPHYLLINE
     Indication: Pneumonitis
     Dosage: STRENGTH: 250MG, 0-0-1
     Route: 065
  8. PREDNISONE [Concomitant]
     Active Substance: PREDNISONE
     Indication: Immune-mediated lung disease
     Dosage: STRENGTH: 15 MG, 1-0-0
     Route: 065
  9. DENOSUMAB [Concomitant]
     Active Substance: DENOSUMAB
     Route: 065
  10. SPORANOX [Concomitant]
     Active Substance: ITRACONAZOLE
     Indication: Candida infection
     Route: 065
     Dates: start: 20240902, end: 20240905
  11. SERETIDE [Concomitant]
     Active Substance: FLUTICASONE PROPIONATE\SALMETEROL XINAFOATE
     Route: 065
  12. FENOTEROL HYDROBROMIDE\IPRATROPIUM BROMIDE [Concomitant]
     Active Substance: FENOTEROL HYDROBROMIDE\IPRATROPIUM BROMIDE
     Route: 065
  13. AMLODIPINE\PERINDOPRIL [Concomitant]
     Active Substance: AMLODIPINE\PERINDOPRIL
     Route: 065
  14. Calcium carbonate ,Cholecalciferol [Concomitant]
     Route: 065
  15. ALLOPURINOL [Concomitant]
     Active Substance: ALLOPURINOL
     Dosage: STRENGTH: 100 MG, 0-1-0
     Route: 065
  16. DIETARY SUPPLEMENT\HERBALS\MILK THISTLE [Concomitant]
     Active Substance: MILK THISTLE
     Route: 065

REACTIONS (2)
  - Liver disorder [Unknown]
  - Hepatic enzyme increased [Unknown]

NARRATIVE: CASE EVENT DATE: 20240822
